FAERS Safety Report 22303910 (Version 2)
Quarter: 2023Q2

REPORT INFORMATION
  Report Type: Spontaneous
  Country: DE (occurrence: DE)
  Receive Date: 20230510
  Receipt Date: 20230622
  Transmission Date: 20230722
  Serious: Yes (Other)
  Sender: FDA-Public Use
  Company Number: DE-ROCHE-3336738

PATIENT
  Age: 46 Year
  Sex: Male

DRUGS (23)
  1. METHOTREXATE [Suspect]
     Active Substance: METHOTREXATE
     Indication: Diffuse large B-cell lymphoma
     Dosage: 2ND LINE, GMALL BALL PROTOCOL
     Route: 065
     Dates: start: 20111001, end: 20111201
  2. CISPLATIN [Suspect]
     Active Substance: CISPLATIN
     Indication: Diffuse large B-cell lymphoma
     Dosage: UNK R-DHAP
     Route: 065
     Dates: start: 201304, end: 201305
  3. PREDNISONE [Suspect]
     Active Substance: PREDNISONE
     Indication: Diffuse large B-cell lymphoma
     Dosage: UNK
     Route: 065
     Dates: start: 201012, end: 201102
  4. RITUXIMAB [Suspect]
     Active Substance: RITUXIMAB
     Indication: Diffuse large B-cell lymphoma
     Dosage: 1ST LINE, R-CHOP
     Route: 065
     Dates: start: 20101201, end: 20110201
  5. RITUXIMAB [Suspect]
     Active Substance: RITUXIMAB
     Dosage: 3RD LINE, R-BEAM
     Route: 065
     Dates: start: 20120201, end: 20120208
  6. RITUXIMAB [Suspect]
     Active Substance: RITUXIMAB
     Dosage: R-DHAP
     Route: 065
     Dates: start: 20130401, end: 20130501
  7. RITUXIMAB [Suspect]
     Active Substance: RITUXIMAB
     Dosage: 6TH LINE
     Route: 065
     Dates: start: 20140901, end: 20151001
  8. CYTARABINE [Suspect]
     Active Substance: CYTARABINE
     Indication: Diffuse large B-cell lymphoma
     Dosage: 2ND LINE, GMALL BALL PROTOCOL
     Route: 065
     Dates: start: 20111001, end: 20111201
  9. CYCLOPHOSPHAMIDE\DOXORUBICIN\PREDNISONE\VINCRISTINE [Suspect]
     Active Substance: CYCLOPHOSPHAMIDE\DOXORUBICIN\PREDNISONE\VINCRISTINE
     Indication: Diffuse large B-cell lymphoma
     Dosage: 1ST LINE, R-CHOP
     Route: 065
     Dates: start: 20101201, end: 20110201
  10. ETOPOSIDE [Suspect]
     Active Substance: ETOPOSIDE
     Indication: Diffuse large B-cell lymphoma
     Dosage: 2ND LINE, GMALL BALL PROTOCOL
     Route: 065
     Dates: start: 20111001, end: 20111201
  11. ETOPOSIDE [Suspect]
     Active Substance: ETOPOSIDE
     Dosage: UNK 3RD LINE, R-BEAM
     Route: 065
     Dates: start: 20120201, end: 20120208
  12. IFOSFAMIDE [Suspect]
     Active Substance: IFOSFAMIDE
     Indication: Diffuse large B-cell lymphoma
     Dosage: 2ND LINE, GMALL BALL PROTOCOL
     Route: 065
     Dates: start: 20111001, end: 20111201
  13. CISPLATIN\CYTARABINE\DEXAMETHASONE [Suspect]
     Active Substance: CISPLATIN\CYTARABINE\DEXAMETHASONE
     Indication: Diffuse large B-cell lymphoma
     Dosage: R-DHAP
     Route: 065
     Dates: start: 20130401, end: 20130501
  14. CYCLOPHOSPHAMIDE [Suspect]
     Active Substance: CYCLOPHOSPHAMIDE
     Indication: Diffuse large B-cell lymphoma
     Dosage: 2ND LINE, GMALL BALL PROTOCOL
     Route: 065
     Dates: start: 20111001, end: 20111201
  15. CYCLOPHOSPHAMIDE [Suspect]
     Active Substance: CYCLOPHOSPHAMIDE
     Dosage: 5TH LINE
     Route: 065
     Dates: start: 20130620, end: 20130626
  16. LENALIDOMIDE [Suspect]
     Active Substance: LENALIDOMIDE
     Indication: Diffuse large B-cell lymphoma
     Dosage: 6TH LINE
     Route: 065
     Dates: start: 20140901, end: 20151001
  17. BEAM [Suspect]
     Active Substance: SODIUM FLUORIDE
     Indication: Diffuse large B-cell lymphoma
     Dosage: 3RD LINE, R-BEAM
     Route: 065
     Dates: start: 20120201, end: 20120208
  18. BICNU [Suspect]
     Active Substance: CARMUSTINE
     Indication: Diffuse large B-cell lymphoma
     Dosage: UNK 3RD LINE, R-BEAM
     Route: 065
     Dates: start: 20120201, end: 20120208
  19. CYTARABINE [Suspect]
     Active Substance: CYTARABINE
     Indication: Diffuse large B-cell lymphoma
     Dosage: UNK 3RD LINE, R-BEAM
     Route: 065
     Dates: start: 20120201, end: 20120208
  20. EPIRUBICIN [Suspect]
     Active Substance: EPIRUBICIN
     Indication: Diffuse large B-cell lymphoma
     Dosage: UNK 1ST LINE, R-CHOP
     Route: 065
     Dates: start: 201012, end: 201102
  21. VINCRISTINE [Suspect]
     Active Substance: VINCRISTINE
     Indication: Diffuse large B-cell lymphoma
     Dosage: UNK 1ST LINE, R-CHOP
     Route: 065
     Dates: start: 201010, end: 201102
  22. VINCRISTINE [Suspect]
     Active Substance: VINCRISTINE
     Dosage: UNK, 1ST LINE, R-CHOP
     Route: 065
     Dates: start: 201012, end: 201102
  23. DEXAMETHASONE [Suspect]
     Active Substance: DEXAMETHASONE
     Indication: Diffuse large B-cell lymphoma
     Dosage: UNK R-DHAP
     Route: 065
     Dates: start: 201304, end: 201305

REACTIONS (2)
  - Polyneuropathy [Recovering/Resolving]
  - Lymphoma [Not Recovered/Not Resolved]

NARRATIVE: CASE EVENT DATE: 20230101
